FAERS Safety Report 9358782 (Version 2)
Quarter: 2013Q3

REPORT INFORMATION
  Report Type: Spontaneous
  Country: FR (occurrence: FR)
  Receive Date: 20130620
  Receipt Date: 20130702
  Transmission Date: 20140515
  Serious: Yes (Other)
  Sender: FDA-Public Use
  Company Number: FR-PFIZER INC-2013113953

PATIENT
  Age: 62 Year
  Sex: Female

DRUGS (4)
  1. ANSATIPINE [Suspect]
     Indication: MYCOBACTERIUM AVIUM COMPLEX INFECTION
     Dosage: 150 MG, 2X/DAY
     Route: 048
     Dates: start: 20121002, end: 20130206
  2. DEXAMBUTOL [Concomitant]
     Indication: MYCOBACTERIUM AVIUM COMPLEX INFECTION
     Dosage: 500 MG, 2X/DAY
     Route: 048
     Dates: start: 20121002
  3. ZECLAR [Concomitant]
     Indication: MYCOBACTERIUM AVIUM COMPLEX INFECTION
     Dosage: 500 MG, 2X/DAY
     Route: 048
     Dates: start: 20121002
  4. LODOZ [Concomitant]
     Dosage: UNK

REACTIONS (8)
  - Rash pruritic [Recovered/Resolved]
  - Chapped lips [Recovered/Resolved]
  - Eyelid irritation [Recovered/Resolved]
  - Pyrexia [Recovered/Resolved]
  - Cough [Recovered/Resolved]
  - Cheilitis [Recovered/Resolved]
  - Gastrointestinal disorder [Recovered/Resolved]
  - Rash [Recovered/Resolved]
